FAERS Safety Report 5413296-4 (Version None)
Quarter: 2007Q3

REPORT INFORMATION
  Report Type: 
  Country: None (occurrence: None)
  Receive Date: 20070717
  Receipt Date: 20060913
  Transmission Date: 20080115
  Serious: Yes (Other)
  Sender: FDA-Public Use
  Company Number: 2006US002073

PATIENT
  Age: 86 Year
  Sex: Male

DRUGS (1)
  1. ADENOSCAN [Suspect]
     Indication: SCAN MYOCARDIAL PERFUSION
     Dates: start: 20060828, end: 20060828

REACTIONS (2)
  - HEART RATE DECREASED [None]
  - INCORRECT DRUG ADMINISTRATION RATE [None]
